FAERS Safety Report 8078795-8 (Version None)
Quarter: 2012Q1

REPORT INFORMATION
  Report Type: 
  Country: None (occurrence: None)
  Receive Date: 20120124
  Receipt Date: 20120119
  Transmission Date: 20120608
  Serious: Yes (Other)
  Sender: FDA-Public Use
  Company Number: 2011SP050484

PATIENT
  Age: 23 Year
  Sex: Female
  Weight: 73.6 kg

DRUGS (19)
  1. IBUPROFEN [Suspect]
     Indication: HEADACHE
     Dates: start: 20041201, end: 20110301
  2. IBUPROFEN [Suspect]
     Indication: PAIN
     Dates: start: 20041201, end: 20110301
  3. IBUPROFEN [Suspect]
     Indication: NECK PAIN
     Dates: start: 20041201, end: 20110301
  4. TRAMADOL HYDROCHLORIDE [Suspect]
     Indication: HEADACHE
     Dates: start: 20060816
  5. TRAMADOL HYDROCHLORIDE [Suspect]
     Indication: NECK PAIN
     Dates: start: 20060816
  6. TRAMADOL HYDROCHLORIDE [Suspect]
     Indication: PAIN
     Dates: start: 20060816
  7. ACETAMINOPHEN [Concomitant]
  8. NORTRIPTYLINE HCL [Suspect]
     Indication: DEPRESSION
     Dates: start: 20090223, end: 20110701
  9. PAROXETINE HCL [Suspect]
     Indication: DEPRESSION
     Dates: start: 20090223, end: 20100127
  10. IBUMETIN [Concomitant]
  11. MIRTAZAPINE [Suspect]
     Indication: ANXIETY
     Dates: start: 20060320
  12. IMOVANE (ZOPICLONE) [Suspect]
     Indication: INSOMNIA
     Dosage: 7.5 MG;QD;
     Dates: start: 20060405, end: 20110401
  13. TRUXAL (CHLORPROTHIXENE) [Suspect]
     Indication: PSYCHOTIC DISORDER
     Dates: start: 20061201, end: 20110801
  14. PAMOL [Concomitant]
  15. PAROXETINE HCL [Concomitant]
  16. MIGEA RAPID (TOLFENAMACID) (TOLFENAMIC ACID) [Suspect]
     Indication: MIGRAINE
     Dates: start: 20100618
  17. MIRANSERIN (MIANSERIN HYDROCHLORIDE) [Suspect]
     Indication: DEPRESSION
     Dates: start: 20080925, end: 20081201
  18. VENLAFAXINE [Suspect]
     Indication: PRODUCT USED FOR UNKNOWN INDICATION
     Dates: start: 20060928, end: 20081201
  19. MAGNESIUM HYDROXID [Concomitant]

REACTIONS (18)
  - NECK PAIN [None]
  - DEPRESSION [None]
  - DYSPEPSIA [None]
  - HAEMORRHOIDAL HAEMORRHAGE [None]
  - DISCOMFORT [None]
  - FLUID RETENTION [None]
  - NO THERAPEUTIC RESPONSE [None]
  - TOXICITY TO VARIOUS AGENTS [None]
  - MIGRAINE [None]
  - GASTROOESOPHAGEAL REFLUX DISEASE [None]
  - SWELLING FACE [None]
  - INSOMNIA [None]
  - SUICIDAL IDEATION [None]
  - ABDOMINAL DISTENSION [None]
  - SYNCOPE [None]
  - CONSTIPATION [None]
  - SWELLING [None]
  - OEDEMA PERIPHERAL [None]
